FAERS Safety Report 18671189 (Version 2)
Quarter: 2021Q1

REPORT INFORMATION
  Report Type: Report from Study
  Country: US (occurrence: US)
  Receive Date: 20201228
  Receipt Date: 20210105
  Transmission Date: 20210419
  Serious: Yes (Other)
  Sender: FDA-Public Use
  Company Number: US-GILEAD-2020-0510239

PATIENT
  Age: 19 Year
  Sex: Male

DRUGS (15)
  1. TRIAMCINOLONE ACETONIDE. [Concomitant]
     Active Substance: TRIAMCINOLONE ACETONIDE
  2. PROBIOTIC 10 [Concomitant]
     Active Substance: DIETARY SUPPLEMENT\PROBIOTICS
  3. CLONAZEPAM. [Concomitant]
     Active Substance: CLONAZEPAM
  4. AMMONIUM LACTATE. [Concomitant]
     Active Substance: AMMONIUM LACTATE
  5. MILK OF MAGNESIA [Concomitant]
     Active Substance: MAGNESIUM HYDROXIDE
  6. AZTREONAM LYSINE [Suspect]
     Active Substance: AZTREONAM LYSINE
     Indication: CYSTIC FIBROSIS
     Dosage: 75 MG, TID, FOR 28 DAYS ON AND 28 DAYS OFF
     Route: 055
  7. MIDAZOLAM HYDROCHLORIDE. [Concomitant]
     Active Substance: MIDAZOLAM HYDROCHLORIDE
  8. HYPERSAL [Concomitant]
     Active Substance: SODIUM CHLORIDE
  9. KEPPRA [Concomitant]
     Active Substance: LEVETIRACETAM
  10. PREVACID [Concomitant]
     Active Substance: LANSOPRAZOLE
  11. ZONISAMIDE. [Concomitant]
     Active Substance: ZONISAMIDE
  12. MULTIVITAMINS [VITAMINS NOS] [Concomitant]
     Active Substance: VITAMINS
  13. NUTREN 1.5 [Concomitant]
     Active Substance: DIETARY SUPPLEMENT
  14. OXYGEN. [Concomitant]
     Active Substance: OXYGEN
  15. PULMOZYME [Concomitant]
     Active Substance: DORNASE ALFA

REACTIONS (4)
  - Illness [Not Recovered/Not Resolved]
  - Near death experience [Unknown]
  - Feeling abnormal [Not Recovered/Not Resolved]
  - Malaise [Not Recovered/Not Resolved]

NARRATIVE: CASE EVENT DATE: 202009
